FAERS Safety Report 14404406 (Version 1)
Quarter: 2018Q1

REPORT INFORMATION
  Report Type: Spontaneous
  Country: FR (occurrence: FR)
  Receive Date: 20180117
  Receipt Date: 20180117
  Transmission Date: 20180509
  Serious: Yes (Hospitalization, Other)
  Sender: FDA-Public Use
  Company Number: FR-009507513-1801FRA005425

PATIENT
  Age: 66 Year
  Sex: Female

DRUGS (3)
  1. FORSTEO [Suspect]
     Active Substance: TERIPARATIDE
     Indication: OSTEOPOROTIC FRACTURE
     Dosage: 20 MICROGRAM, QD
     Route: 058
     Dates: start: 201505, end: 20160119
  2. FOSAMAX [Suspect]
     Active Substance: ALENDRONATE SODIUM
     Indication: OSTEOPOROTIC FRACTURE
     Dosage: UNK
     Route: 048
     Dates: start: 201601, end: 20171102
  3. TYSABRI [Concomitant]
     Active Substance: NATALIZUMAB

REACTIONS (1)
  - Ischaemic stroke [Recovered/Resolved with Sequelae]

NARRATIVE: CASE EVENT DATE: 201601
